FAERS Safety Report 16542564 (Version 1)
Quarter: 2019Q3

REPORT INFORMATION
  Report Type: Spontaneous
  Country: US (occurrence: US)
  Receive Date: 20190709
  Receipt Date: 20190709
  Transmission Date: 20191004
  Serious: Yes (Hospitalization, Other)
  Sender: FDA-Public Use
  Company Number: US-CONCORDIA PHARMACEUTICALS INC.-GSH201907-001630

PATIENT
  Age: 56 Year
  Sex: Female

DRUGS (5)
  1. METHYLPREDNISOLONE. [Suspect]
     Active Substance: METHYLPREDNISOLONE
     Indication: DRUG REACTION WITH EOSINOPHILIA AND SYSTEMIC SYMPTOMS
     Route: 065
  2. METHYLPREDNISOLONE. [Suspect]
     Active Substance: METHYLPREDNISOLONE
     Route: 065
  3. METHYLPREDNISOLONE. [Suspect]
     Active Substance: METHYLPREDNISOLONE
     Dosage: UNKNOWN (TAPERED TO ORAL METHYLPREDNISOLONE)
     Route: 048
  4. HYDROXYCHLOROQUINE [Suspect]
     Active Substance: HYDROXYCHLOROQUINE
     Indication: AUTOIMMUNE DISORDER
     Route: 065
  5. HYDROXYCHLOROQUINE [Suspect]
     Active Substance: HYDROXYCHLOROQUINE
     Indication: LYMPHADENOPATHY

REACTIONS (15)
  - Chills [Unknown]
  - Rash pruritic [Unknown]
  - Pyrexia [Unknown]
  - Face oedema [Unknown]
  - Rebound effect [Unknown]
  - Oedema peripheral [Unknown]
  - Transaminases increased [Unknown]
  - Leukocytosis [Unknown]
  - Rash [Recovered/Resolved]
  - Drug reaction with eosinophilia and systemic symptoms [Recovered/Resolved]
  - Eosinophilia [Unknown]
  - Rash [Unknown]
  - Drug eruption [Unknown]
  - Epstein-Barr virus infection [Unknown]
  - Rash generalised [Unknown]
